FAERS Safety Report 13138954 (Version 1)
Quarter: 2017Q1

REPORT INFORMATION
  Report Type: Spontaneous
  Country: US (occurrence: US)
  Receive Date: 20170123
  Receipt Date: 20170123
  Transmission Date: 20170428
  Serious: No
  Sender: FDA-Public Use
  Company Number: US-PFIZER INC-2017026996

PATIENT
  Sex: Female

DRUGS (1)
  1. XELJANZ XR [Suspect]
     Active Substance: TOFACITINIB CITRATE

REACTIONS (9)
  - Hepatitis B DNA decreased [Unknown]
  - Glomerular filtration rate decreased [Unknown]
  - Back pain [Unknown]
  - White blood cell count decreased [Unknown]
  - Depression [Unknown]
  - Eosinophil count decreased [Unknown]
  - Tenderness [Unknown]
  - Swelling [Unknown]
  - Arthralgia [Unknown]
